FAERS Safety Report 6081642-7 (Version None)
Quarter: 2009Q1

REPORT INFORMATION
  Report Type: 
  Country: None (occurrence: None)
  Receive Date: 20090218
  Receipt Date: 20090212
  Transmission Date: 20090719
  Serious: Yes (Life-Threatening)
  Sender: FDA-Public Use
  Company Number: US-PFIZER INC-2008051185

PATIENT
  Sex: Female
  Weight: 116.4 kg

DRUGS (11)
  1. PREGABALIN [Suspect]
     Indication: PAIN MANAGEMENT
     Dosage: 150 MG, 1X/DAY
     Route: 048
     Dates: start: 20080616, end: 20080617
  2. ALLEGRA [Concomitant]
     Route: 048
     Dates: start: 19960101
  3. MULTI-VITAMINS [Concomitant]
     Route: 048
     Dates: start: 19920101, end: 20080602
  4. HYDROCHLOROTHIAZIDE [Concomitant]
     Route: 048
     Dates: start: 19980501
  5. POLYSACCHARIDE-IRON COMPLEX [Concomitant]
     Route: 048
     Dates: start: 20080525
  6. VITAMIN B-12 [Concomitant]
     Route: 048
     Dates: start: 20060101, end: 20080602
  7. FLUOXETINE HCL [Concomitant]
     Route: 048
     Dates: start: 20080401
  8. PROCRIT [Concomitant]
     Dosage: WEEKLY X4
     Route: 030
     Dates: start: 20080528, end: 20080617
  9. NASACORT [Concomitant]
     Dosage: 2 SPRAYS EA NOSTRIL,ONCE DAILY PRN
     Route: 045
     Dates: start: 19960101
  10. CALCIUM [Concomitant]
     Dosage: 1 TAB DAILY
     Route: 048
     Dates: start: 20060101
  11. TYLENOL (CAPLET) [Concomitant]
     Route: 048
     Dates: start: 20060601

REACTIONS (2)
  - ANAPHYLACTIC REACTION [None]
  - HYPOTENSION [None]
